FAERS Safety Report 25364156 (Version 1)
Quarter: 2025Q2

REPORT INFORMATION
  Report Type: Other
  Country: US (occurrence: US)
  Receive Date: 20250527
  Receipt Date: 20250527
  Transmission Date: 20250716
  Serious: Yes (Hospitalization, Other)
  Sender: HLS THERAPEUTICS
  Company Number: US-HLS-202500193

PATIENT
  Age: 51 Year
  Sex: Male

DRUGS (2)
  1. CLOZAPINE [Suspect]
     Active Substance: CLOZAPINE
     Indication: Schizophrenia
     Route: 065
  2. RISPERIDONE [Concomitant]
     Active Substance: RISPERIDONE
     Indication: Schizophrenia
     Dosage: WAS TITRATED UP TO 4MG
     Route: 065

REACTIONS (7)
  - Agranulocytosis [Recovering/Resolving]
  - Constipation [Unknown]
  - Cough [Unknown]
  - Pyrexia [Recovering/Resolving]
  - Bronchopulmonary aspergillosis [Recovering/Resolving]
  - Leukopenia [Unknown]
  - Sedation [Unknown]
